FAERS Safety Report 7470749-5 (Version None)
Quarter: 2011Q2

REPORT INFORMATION
  Report Type: 
  Country: None (occurrence: None)
  Receive Date: 20110510
  Receipt Date: 20110429
  Transmission Date: 20111010
  Serious: Yes (Hospitalization, Other)
  Sender: FDA-Public Use
  Company Number: PHHY2011US36877

PATIENT
  Sex: Male
  Weight: 44.898 kg

DRUGS (2)
  1. EXJADE [Suspect]
     Dosage: 125 MG, QD
     Route: 048
     Dates: start: 20110114
  2. TRANSFUSIONS [Concomitant]
     Dosage: UNK

REACTIONS (2)
  - RECTAL HAEMORRHAGE [None]
  - FULL BLOOD COUNT DECREASED [None]
